FAERS Safety Report 7715205-1 (Version None)
Quarter: 2011Q3

REPORT INFORMATION
  Report Type: 
  Country: None (occurrence: None)
  Receive Date: 20110829
  Receipt Date: 20110822
  Transmission Date: 20111222
  Serious: Yes (Death, Hospitalization, Other)
  Sender: FDA-Public Use
  Company Number: PHHY2011JP75916

PATIENT
  Age: 51 Year
  Sex: Male

DRUGS (10)
  1. MYCOPHENOLATE MOFETIL [Concomitant]
     Indication: IMMUNOSUPPRESSION
  2. BASILIXIMAB [Concomitant]
     Indication: IMMUNOSUPPRESSION
  3. TACROLIMUS [Concomitant]
  4. STEROIDS NOS [Concomitant]
  5. ANTIVIRALS NOS [Concomitant]
  6. RIBAVIRIN [Concomitant]
     Dosage: 400 MG/ DAY
  7. PREDNISOLONE [Concomitant]
     Dosage: 20 MG, DAILY
  8. CYCLOSPORINE [Suspect]
     Indication: IMMUNOSUPPRESSION
  9. PREDNISOLONE [Concomitant]
     Dosage: 10 MG, DAILY
  10. INTERFERON [Concomitant]
     Dosage: 1.5 UG/KG/WEEK

REACTIONS (8)
  - PNEUMOCYSTIS JIROVECI PNEUMONIA [None]
  - HEPATITIS C [None]
  - ANAEMIA [None]
  - MULTI-ORGAN FAILURE [None]
  - HEPATIC FUNCTION ABNORMAL [None]
  - IMMUNOSUPPRESSANT DRUG LEVEL INCREASED [None]
  - AUTOIMMUNE HEPATITIS [None]
  - ACUTE RESPIRATORY DISTRESS SYNDROME [None]
